FAERS Safety Report 12802477 (Version 1)
Quarter: 2016Q4

REPORT INFORMATION
  Report Type: Spontaneous
  Country: US (occurrence: US)
  Receive Date: 20161003
  Receipt Date: 20161003
  Transmission Date: 20170207
  Serious: Yes (Other)
  Sender: FDA-Public Use
  Company Number: US-HQ SPECIALTY-US-2016INT000888

PATIENT
  Age: 65 Year
  Sex: Male

DRUGS (2)
  1. CISPLATIN. [Suspect]
     Active Substance: CISPLATIN
     Indication: ANAPLASTIC THYROID CANCER
     Dosage: 60 MG/M2, ON DAYS 1 AND 22
  2. PACLITAXEL. [Suspect]
     Active Substance: PACLITAXEL
     Indication: ANAPLASTIC THYROID CANCER
     Dosage: 50 MG/M2, WEEKLY FOR 5 WEEKS
     Route: 065

REACTIONS (3)
  - Weight decreased [Unknown]
  - Dysphagia [Unknown]
  - Fatigue [Unknown]
